FAERS Safety Report 4986981-6 (Version None)
Quarter: 2006Q2

REPORT INFORMATION
  Report Type: 
  Country: None (occurrence: None)
  Receive Date: 20060501
  Receipt Date: 20060315
  Transmission Date: 20061013
  Serious: Yes (Other)
  Sender: FDA-Public Use
  Company Number: PHNU2006DE01236

PATIENT
  Age: 33 Year
  Sex: Female

DRUGS (1)
  1. RITALIN [Suspect]
     Dosage: 20 MG/DAY
     Route: 048

REACTIONS (1)
  - LENS DISORDER [None]
